FAERS Safety Report 8341807-8 (Version None)
Quarter: 2012Q2

REPORT INFORMATION
  Report Type: 
  Country: None (occurrence: None)
  Receive Date: 20120507
  Receipt Date: 20120425
  Transmission Date: 20120825
  Serious: Yes (Hospitalization)
  Sender: FDA-Public Use
  Company Number: US-ACTELION-A-NJ2012-64793

PATIENT

DRUGS (4)
  1. TYVASO [Concomitant]
  2. TRACLEER [Suspect]
     Indication: PULMONARY ARTERIAL HYPERTENSION
     Dosage: UNK
     Route: 048
     Dates: start: 20120316
  3. CALCIUM CHANNEL BLOCKERS [Concomitant]
  4. SILDENAFIL [Concomitant]

REACTIONS (1)
  - FEMALE STERILISATION [None]
